FAERS Safety Report 9025283 (Version 1)
Quarter: 2013Q1

REPORT INFORMATION
  Report Type: Spontaneous
  Country: US (occurrence: US)
  Receive Date: 20130122
  Receipt Date: 20130122
  Transmission Date: 20140127
  Serious: No
  Sender: FDA-Public Use
  Company Number: US-TEVA-381487USA

PATIENT
  Sex: Male

DRUGS (3)
  1. COPAXONE [Suspect]
  2. OMEGA 3 [Concomitant]
  3. MULTIVITAMIN [Concomitant]

REACTIONS (1)
  - Rash [Not Recovered/Not Resolved]
